FAERS Safety Report 8702296 (Version 2)
Quarter: 2012Q4

REPORT INFORMATION
  Report Type: Report from Study
  Country: US (occurrence: US)
  Receive Date: 20120803
  Receipt Date: 20120915
  Transmission Date: 20130627
  Serious: Yes (Hospitalization)
  Sender: FDA-Public Use
  Company Number: US-ABBOTT-12P-163-0956801-00

PATIENT
  Age: 38 None
  Sex: Male
  Weight: 44.95 kg

DRUGS (3)
  1. HUMIRA 40 MG/0.8 ML PEN [Suspect]
     Indication: CROHN^S DISEASE
     Dates: start: 20120429, end: 20120709
  2. VITAMIN D [Concomitant]
     Indication: PRODUCT USED FOR UNKNOWN INDICATION
  3. OIL [Concomitant]
     Indication: PRODUCT USED FOR UNKNOWN INDICATION

REACTIONS (19)
  - Weight decreased [Not Recovered/Not Resolved]
  - Pyrexia [Unknown]
  - Crohn^s disease [Unknown]
  - Vomiting [Unknown]
  - Diarrhoea [Unknown]
  - Asthenia [Unknown]
  - Infection [Unknown]
  - Night sweats [Unknown]
  - Nausea [Unknown]
  - Abscess [Unknown]
  - Abscess [Unknown]
  - Asthenia [Unknown]
  - Drug ineffective [Unknown]
  - Vomiting [Unknown]
  - Condition aggravated [Unknown]
  - Perirectal abscess [Unknown]
  - Colitis [Unknown]
  - Crohn^s disease [Unknown]
  - Crohn^s disease [Unknown]
